FAERS Safety Report 12311275 (Version 1)
Quarter: 2016Q2

REPORT INFORMATION
  Report Type: Spontaneous
  Country: US (occurrence: US)
  Receive Date: 20160427
  Receipt Date: 20160427
  Transmission Date: 20160815
  Serious: Yes (Death)
  Sender: FDA-Public Use
  Company Number: US-LPDUSPRD-20160358

PATIENT
  Sex: Female

DRUGS (1)
  1. TRANEXAMIC ACID INJECTION(0517-0960-01) [Suspect]
     Active Substance: TRANEXAMIC ACID
     Dosage: 2 CC
     Route: 037

REACTIONS (10)
  - Medication error [Unknown]
  - Adverse event [Fatal]
  - Ventricular tachycardia [Unknown]
  - Status epilepticus [Unknown]
  - Tetany [Unknown]
  - Back pain [Recovered/Resolved]
  - Muscle spasms [Unknown]
  - Cardio-respiratory arrest [Fatal]
  - Agitation [Unknown]
  - Haemodynamic instability [Unknown]
